FAERS Safety Report 10776840 (Version 1)
Quarter: 2015Q1

REPORT INFORMATION
  Report Type: Spontaneous
  Country: GB (occurrence: GB)
  Receive Date: 20150209
  Receipt Date: 20150209
  Transmission Date: 20150721
  Serious: Yes (Disabling)
  Sender: FDA-Public Use
  Company Number: GB-TEVA-538031ISR

PATIENT
  Sex: Female

DRUGS (1)
  1. NAPROXEN. [Suspect]
     Active Substance: NAPROXEN
     Indication: PAIN
     Dates: end: 20131130

REACTIONS (2)
  - Mouth swelling [Recovered/Resolved]
  - Stevens-Johnson syndrome [Recovered/Resolved]
